FAERS Safety Report 16687078 (Version 1)
Quarter: 2019Q3

REPORT INFORMATION
  Report Type: Spontaneous
  Country: US (occurrence: US)
  Receive Date: 20190624
  Receipt Date: 20190624
  Transmission Date: 20191004
  Serious: Yes (Death)
  Sender: FDA-Public Use
  Company Number: None

PATIENT
  Age: 66 Year
  Sex: Female

DRUGS (6)
  1. SILDENAFIL TAB [Suspect]
     Active Substance: SILDENAFIL
     Indication: PULMONARY ARTERIAL HYPERTENSION
  2. AMODARONE TAB [Concomitant]
  3. CARTIAXT [Concomitant]
  4. ELIQUIS [Concomitant]
     Active Substance: APIXABAN
  5. BUMETANIDE. [Concomitant]
     Active Substance: BUMETANIDE
  6. ALLOPURINOL TAB [Concomitant]
     Active Substance: ALLOPURINOL

REACTIONS (1)
  - Death [None]

NARRATIVE: CASE EVENT DATE: 20190609
